FAERS Safety Report 5155056-8 (Version None)
Quarter: 2006Q4

REPORT INFORMATION
  Report Type: 
  Country: None (occurrence: None)
  Receive Date: 20061121
  Receipt Date: 20061102
  Transmission Date: 20070319
  Serious: Yes (Other)
  Sender: FDA-Public Use
  Company Number: FR-ROCHE-470498

PATIENT
  Sex: Male

DRUGS (1)
  1. RIVOTRIL [Suspect]
     Route: 065

REACTIONS (3)
  - BLOOD DISORDER [None]
  - CYTOLYTIC HEPATITIS [None]
  - LIVER DISORDER [None]
